APPROVED DRUG PRODUCT: COLCHICINE
Active Ingredient: COLCHICINE
Strength: 0.6MG
Dosage Form/Route: CAPSULE;ORAL
Application: A210757 | Product #001 | TE Code: AB
Applicant: GRANULES PHARMACEUTICALS INC
Approved: Apr 29, 2024 | RLD: No | RS: No | Type: RX